FAERS Safety Report 21864097 (Version 6)
Quarter: 2023Q1

REPORT INFORMATION
  Report Type: Spontaneous
  Country: JP (occurrence: JP)
  Receive Date: 20230116
  Receipt Date: 20230126
  Transmission Date: 20230417
  Serious: Yes (Death, Life-Threatening, Other)
  Sender: FDA-Public Use
  Company Number: JP-CHUGAI-2023000625

PATIENT
  Age: 81 Year
  Sex: Male
  Weight: 78 kg

DRUGS (6)
  1. POLIVY [Suspect]
     Active Substance: POLATUZUMAB VEDOTIN-PIIQ
     Indication: Diffuse large B-cell lymphoma
     Dosage: 135 MILLIGRAM, SINGLE
     Route: 041
     Dates: start: 20221226, end: 20221226
  2. RITUXIMAB [Suspect]
     Active Substance: RITUXIMAB
     Indication: Diffuse large B-cell lymphoma
     Dosage: 690 MILLIGRAM, SINGLE
     Route: 041
     Dates: start: 20221226, end: 20221226
  3. ADRIAMYCIN [Suspect]
     Active Substance: DOXORUBICIN HYDROCHLORIDE
     Indication: Diffuse large B-cell lymphoma
     Dosage: 50 MILLIGRAM, SINGLE
     Route: 041
     Dates: start: 20221226, end: 20221226
  4. CYCLOPHOSPHAMIDE [Suspect]
     Active Substance: CYCLOPHOSPHAMIDE
     Indication: Diffuse large B-cell lymphoma
     Dosage: 750 MILLIGRAM, SINGLE
     Route: 041
     Dates: start: 20221226, end: 20221226
  5. ZOLEDRONIC ACID [Concomitant]
     Active Substance: ZOLEDRONIC ACID
     Dosage: 4 MILLIGRAM, SINGLE
     Route: 041
     Dates: start: 20221226, end: 20221226
  6. RASBURICASE [Concomitant]
     Active Substance: RASBURICASE
     Route: 042

REACTIONS (4)
  - Pneumonia aspiration [Unknown]
  - Sepsis [Unknown]
  - Apnoea [Fatal]
  - Disease progression [Fatal]

NARRATIVE: CASE EVENT DATE: 20230101
